FAERS Safety Report 17958719 (Version 2)
Quarter: 2021Q1

REPORT INFORMATION
  Report Type: Spontaneous
  Country: US (occurrence: US)
  Receive Date: 20200629
  Receipt Date: 20210126
  Transmission Date: 20210419
  Serious: No
  Sender: FDA-Public Use
  Company Number: US-PFIZER INC-2020246633

PATIENT
  Age: 64 Year
  Sex: Female
  Weight: 72.57 kg

DRUGS (4)
  1. IBRANCE [Suspect]
     Active Substance: PALBOCICLIB
     Indication: BREAST CANCER METASTATIC
     Dosage: 125 MG
     Dates: start: 20190119
  2. IBRANCE [Suspect]
     Active Substance: PALBOCICLIB
     Dosage: 125 MG, CYCLIC (1 CAPSULE DAILY FOR 3 WEEKS, THEN OFF FOR 1 WEEK)
     Dates: start: 202006
  3. PRAVASTATIN. [Concomitant]
     Active Substance: PRAVASTATIN
     Indication: BLOOD CHOLESTEROL
     Dosage: 40 MG, 1X/DAY
  4. ANASTROZOLE. [Concomitant]
     Active Substance: ANASTROZOLE
     Indication: BREAST CANCER FEMALE
     Dosage: 1 MG, DAILY

REACTIONS (2)
  - White blood cell count decreased [Unknown]
  - Faeces hard [Recovering/Resolving]
